FAERS Safety Report 6722195-7 (Version None)
Quarter: 2010Q2

REPORT INFORMATION
  Report Type: 
  Country: None (occurrence: None)
  Receive Date: 20100512
  Receipt Date: 20100506
  Transmission Date: 20101027
  Serious: Yes (Other)
  Sender: FDA-Public Use
  Company Number: JP-MERCK-1004USA00186

PATIENT
  Age: 41 Year
  Sex: Male

DRUGS (5)
  1. EMEND [Suspect]
     Indication: PROPHYLAXIS OF NAUSEA AND VOMITING
     Route: 048
     Dates: start: 20100324, end: 20100325
  2. EMEND [Suspect]
     Route: 048
     Dates: start: 20100323, end: 20100323
  3. PLATOSIN [Concomitant]
     Route: 065
  4. ADRIACIN [Concomitant]
     Route: 065
  5. ANNACA [Concomitant]
     Route: 065

REACTIONS (1)
  - PRIAPISM [None]
